FAERS Safety Report 16551208 (Version 1)
Quarter: 2019Q3

REPORT INFORMATION
  Report Type: Report from Study
  Country: None (occurrence: BR)
  Receive Date: 20190710
  Receipt Date: 20190710
  Transmission Date: 20191004
  Serious: Yes (Other)
  Sender: FDA-Public Use
  Company Number: BR-ABBVIE-18K-020-2241120-00

PATIENT
  Age: 54 Year
  Sex: Male
  Weight: 62 kg

DRUGS (3)
  1. HUMIRA [Suspect]
     Active Substance: ADALIMUMAB
     Route: 058
  2. HUMIRA [Suspect]
     Active Substance: ADALIMUMAB
     Indication: RHEUMATOID ARTHRITIS
     Route: 058
     Dates: start: 20150201
  3. METFORMIN [Concomitant]
     Active Substance: METFORMIN HYDROCHLORIDE
     Indication: DIABETES MELLITUS
     Route: 048

REACTIONS (6)
  - Loose tooth [Recovering/Resolving]
  - Procedural complication [Unknown]
  - Syncope [Recovered/Resolved]
  - Pulpitis dental [Recovered/Resolved]
  - Syncope [Unknown]
  - Procedural complication [Recovered/Resolved]

NARRATIVE: CASE EVENT DATE: 201711
